FAERS Safety Report 23953300 (Version 3)
Quarter: 2025Q4

REPORT INFORMATION
  Report Type: Report from Study
  Country: US (occurrence: US)
  Receive Date: 20240608
  Receipt Date: 20251028
  Transmission Date: 20260118
  Serious: Yes (Hospitalization, Disabling)
  Sender: ABBVIE
  Company Number: US-ABBVIE-5784476

PATIENT
  Age: 87 Year
  Sex: Male

DRUGS (2)
  1. VENCLEXTA [Suspect]
     Active Substance: VENETOCLAX
     Indication: Chronic lymphocytic leukaemia recurrent
     Dosage: 2 VENCLEXTA OF 100 MG ONCE DAILY
     Route: 048
     Dates: start: 2020, end: 202310
  2. VENCLEXTA [Suspect]
     Active Substance: VENETOCLAX
     Indication: Chronic lymphocytic leukaemia recurrent
     Dosage: 2 VENCLEXTA OF 100 MG ONCE DAILY
     Route: 048
     Dates: start: 20231016

REACTIONS (3)
  - COVID-19 [Unknown]
  - Deafness [Unknown]
  - Meniscus injury [Unknown]

NARRATIVE: CASE EVENT DATE: 20240101
